FAERS Safety Report 12991601 (Version 2)
Quarter: 2016Q4

REPORT INFORMATION
  Report Type: Spontaneous
  Country: RU (occurrence: RU)
  Receive Date: 20161201
  Receipt Date: 20161211
  Transmission Date: 20170207
  Serious: Yes (Other)
  Sender: FDA-Public Use
  Company Number: RU-BEH-2016075665

PATIENT
  Age: 4 Year
  Sex: Male
  Weight: 14.5 kg

DRUGS (3)
  1. DEXAMETHAZONE [Concomitant]
     Active Substance: DEXAMETHASONE
     Indication: PROPHYLAXIS
     Dosage: 2 MG, TOT
     Route: 042
     Dates: start: 20160927
  2. PRIVIGEN [Suspect]
     Active Substance: HUMAN IMMUNOGLOBULIN G
     Indication: PRIMARY IMMUNODEFICIENCY SYNDROME
     Dosage: 4.35 G, TOT
     Route: 042
     Dates: start: 20160927, end: 20160927
  3. CHLOROPYRAMINE [Concomitant]
     Active Substance: CHLOROPYRAMINE
     Indication: PROPHYLAXIS
     Dosage: 0.3
     Route: 042
     Dates: start: 20160927

REACTIONS (11)
  - Peripheral coldness [Unknown]
  - Asthenopia [Unknown]
  - Pallor [Unknown]
  - Cyanosis [Unknown]
  - Angiopathy [Unknown]
  - Syncope [Unknown]
  - Chills [Unknown]
  - Somnolence [Unknown]
  - Muscular weakness [Unknown]
  - Anaphylactoid reaction [Unknown]
  - Aphasia [Unknown]
